FAERS Safety Report 6643519-5 (Version None)
Quarter: 2010Q1

REPORT INFORMATION
  Report Type: 
  Country: None (occurrence: None)
  Receive Date: 20100320
  Receipt Date: 20100312
  Transmission Date: 20100710
  Serious: Yes (Other)
  Sender: FDA-Public Use
  Company Number: CI-B.I. PHARMACEUTICALS,INC./RIDGEFIELD-2010-DE-01647GD

PATIENT

DRUGS (8)
  1. NEVIRAPINE [Suspect]
     Indication: HUMAN IMMUNODEFICIENCY VIRUS TRANSMISSION
     Dosage: 2 MG/KG
  2. NEVIRAPINE [Suspect]
     Indication: PROPHYLAXIS
     Route: 064
  3. ZIDOVUDINE [Suspect]
     Indication: HUMAN IMMUNODEFICIENCY VIRUS TRANSMISSION
     Dosage: 8 MG/KG
     Route: 048
  4. ZIDOVUDINE [Suspect]
     Indication: PROPHYLAXIS
     Route: 064
  5. TENOFOVIR DISOPROXIL FUMARATE [Suspect]
     Indication: HUMAN IMMUNODEFICIENCY VIRUS TRANSMISSION
     Dosage: 13 MG/KG
  6. TENOFOVIR DISOPROXIL FUMARATE [Suspect]
     Indication: PROPHYLAXIS
     Route: 064
  7. EMTRICITABINE [Suspect]
     Indication: HUMAN IMMUNODEFICIENCY VIRUS TRANSMISSION
     Dosage: 2 MG/KG
  8. EMTRICITABINE [Suspect]
     Indication: PROPHYLAXIS
     Route: 064

REACTIONS (1)
  - CEREBRAL DISORDER [None]
